FAERS Safety Report 5066338-2 (Version None)
Quarter: 2006Q3

REPORT INFORMATION
  Report Type: 
  Country: None (occurrence: None)
  Receive Date: 20060728
  Receipt Date: 20060728
  Transmission Date: 20061208
  Serious: Yes (Hospitalization)
  Sender: FDA-Public Use
  Company Number: None

PATIENT
  Sex: Male
  Weight: 13.8 kg

DRUGS (5)
  1. DOXORUBICIN HYDROCHLORIDE [Suspect]
     Dosage: 42.25 MG
  2. METHOTREXATE [Suspect]
     Dosage: 10 MG
  3. PEG-L- ASPARAGINASE (K-H) [Suspect]
     Dosage: 1425 IU
  4. VINCRISTINE SULFATE [Suspect]
     Dosage: 2.56 MG
  5. DEXAMETHASONE TAB [Suspect]
     Dosage: 105 MG

REACTIONS (1)
  - TUBERCULOSIS [None]
